FAERS Safety Report 14519427 (Version 1)
Quarter: 2018Q1

REPORT INFORMATION
  Report Type: Spontaneous
  Country: US (occurrence: US)
  Receive Date: 20180209
  Receipt Date: 20180209
  Transmission Date: 20180509
  Serious: Yes (Hospitalization)
  Sender: FDA-Public Use
  Company Number: None

PATIENT
  Age: 19 Year
  Sex: Female
  Weight: 72 kg

DRUGS (3)
  1. ALLEGRA [Concomitant]
     Active Substance: FEXOFENADINE HYDROCHLORIDE
  2. QUETIAPINE ER 300MG TABLETS [Suspect]
     Active Substance: QUETIAPINE
     Indication: BIPOLAR DISORDER
     Dosage: ?          QUANTITY:1 CAPSULE(S);?
     Route: 048
     Dates: start: 20180201, end: 20180204
  3. SEROQUEL [Concomitant]
     Active Substance: QUETIAPINE FUMARATE

REACTIONS (18)
  - Musculoskeletal stiffness [None]
  - Breath odour [None]
  - Mania [None]
  - Pain in extremity [None]
  - Tremor [None]
  - Abdominal pain upper [None]
  - Dysgeusia [None]
  - Anxiety [None]
  - Nervousness [None]
  - Dizziness [None]
  - Throat tightness [None]
  - Restlessness [None]
  - Cerebral disorder [None]
  - Paranoia [None]
  - Cardiac flutter [None]
  - Palpitations [None]
  - Diarrhoea [None]
  - Feeling abnormal [None]

NARRATIVE: CASE EVENT DATE: 20180202
